FAERS Safety Report 10632292 (Version 2)
Quarter: 2014Q4

REPORT INFORMATION
  Report Type: Spontaneous
  Country: US (occurrence: US)
  Receive Date: 20141205
  Receipt Date: 20141205
  Transmission Date: 20150529
  Serious: No
  Sender: FDA-Public Use
  Company Number: US-BRISTOL-MYERS SQUIBB COMPANY-21283460

PATIENT
  Age: 76 Year
  Sex: Male
  Weight: 92.97 kg

DRUGS (6)
  1. ATIVAN [Concomitant]
     Active Substance: LORAZEPAM
  2. AVODART [Concomitant]
     Active Substance: DUTASTERIDE
  3. ABILIFY [Suspect]
     Active Substance: ARIPIPRAZOLE
     Dosage: 15JAN2009:INCREASED TO 5MG DAILY?20APR2009:INCREASED TO 10MG DAILY?7AUG2012:DECREASED TO 5 MG
     Route: 048
     Dates: start: 20081231, end: 20130115
  4. PAXIL [Concomitant]
     Active Substance: PAROXETINE HYDROCHLORIDE
  5. PAXIL [Concomitant]
     Active Substance: PAROXETINE HYDROCHLORIDE
  6. RAPAFLO [Concomitant]
     Active Substance: SILODOSIN

REACTIONS (2)
  - Fall [Unknown]
  - Dyskinesia [Not Recovered/Not Resolved]

NARRATIVE: CASE EVENT DATE: 20121002
